FAERS Safety Report 6105602-2 (Version None)
Quarter: 2009Q1

REPORT INFORMATION
  Report Type: 
  Country: None (occurrence: None)
  Receive Date: 20090306
  Receipt Date: 20090223
  Transmission Date: 20090719
  Serious: Yes (Death, Hospitalization)
  Sender: FDA-Public Use
  Company Number: US-AVENTIS-200818275US

PATIENT
  Sex: Female
  Weight: 75.9 kg

DRUGS (20)
  1. TAXOTERE [Suspect]
     Dosage: DOSE: 75MG/M2
     Route: 042
     Dates: start: 20081120, end: 20081120
  2. DOXORUBICIN HCL [Suspect]
     Route: 042
     Dates: start: 20081120, end: 20081120
  3. CYCLOPHOSPHAMIDE [Suspect]
     Indication: BREAST CANCER FEMALE
     Route: 042
     Dates: start: 20081120, end: 20081120
  4. COLESTID [Concomitant]
     Dosage: DOSE: 1 G, 1 OR 2
     Dates: end: 20081101
  5. METOPROLOL TARTRATE [Concomitant]
     Dates: end: 20081101
  6. POTASSIUM CHLORIDE [Concomitant]
     Dates: end: 20081101
  7. RANITIDINE [Concomitant]
     Dosage: DOSE: 150MG BID PRN
     Dates: end: 20081101
  8. NAPROXEN [Concomitant]
     Dates: end: 20081101
  9. COLACE [Concomitant]
     Indication: CONSTIPATION
     Dates: end: 20081101
  10. ASPIRIN [Concomitant]
     Dates: end: 20081101
  11. LORATADINE [Concomitant]
     Route: 048
  12. DECADRON [Concomitant]
     Indication: NAUSEA
     Dates: start: 20081119, end: 20081121
  13. DECADRON [Concomitant]
     Indication: VOMITING
     Dates: start: 20081119, end: 20081121
  14. DECADRON [Concomitant]
     Indication: PROPHYLAXIS
     Dates: start: 20081119, end: 20081121
  15. EMEND [Concomitant]
     Indication: NAUSEA
     Dosage: DOSE: UNK
     Route: 042
     Dates: start: 20081120, end: 20081120
  16. EMEND [Concomitant]
     Route: 048
     Dates: start: 20081121, end: 20081122
  17. EMEND [Concomitant]
     Indication: VOMITING
     Dosage: DOSE: UNK
     Route: 042
     Dates: start: 20081120, end: 20081120
  18. EMEND [Concomitant]
     Route: 048
     Dates: start: 20081121, end: 20081122
  19. TOPROL-XL [Concomitant]
  20. COLESTIPOL HYDROCHLORIDE [Concomitant]
     Dosage: DOSE: 1 G, 1-2

REACTIONS (10)
  - ASTHENIA [None]
  - DEHYDRATION [None]
  - HEART RATE INCREASED [None]
  - INFLAMMATORY BOWEL DISEASE [None]
  - INTESTINAL OBSTRUCTION [None]
  - LEUKOPENIA [None]
  - NAUSEA [None]
  - NEUTROPENIC COLITIS [None]
  - PYREXIA [None]
  - VOMITING [None]
